FAERS Safety Report 22648407 (Version 1)
Quarter: 2023Q2

REPORT INFORMATION
  Report Type: Spontaneous
  Country: CN (occurrence: CN)
  Receive Date: 20230628
  Receipt Date: 20230628
  Transmission Date: 20230721
  Serious: Yes (Hospitalization, Other)
  Sender: FDA-Public Use
  Company Number: None

PATIENT
  Age: 28 Year
  Sex: Male
  Weight: 85 kg

DRUGS (2)
  1. MANNITOL [Suspect]
     Active Substance: MANNITOL
     Indication: Swelling
     Dosage: 250 ML ONCE DAILY, DOSAGE FORM: INJECTION
     Route: 041
     Dates: start: 20230415, end: 20230416
  2. FLURBIPROFEN AXETIL [Suspect]
     Active Substance: FLURBIPROFEN AXETIL
     Indication: Analgesic therapy
     Dosage: 50 MG TWICE DAILY (INTRAVENOUS PUSH)
     Route: 041
     Dates: start: 20230415, end: 20230416

REACTIONS (7)
  - Nasal obstruction [Recovering/Resolving]
  - Oxygen saturation decreased [Recovering/Resolving]
  - Chest discomfort [Recovered/Resolved]
  - Rash [Recovering/Resolving]
  - Pruritus [Recovering/Resolving]
  - Blood pressure decreased [Recovering/Resolving]
  - Headache [Recovered/Resolved]

NARRATIVE: CASE EVENT DATE: 20230415
